FAERS Safety Report 6002318-8 (Version None)
Quarter: 2008Q4

REPORT INFORMATION
  Report Type: 
  Country: None (occurrence: None)
  Receive Date: 20081215
  Receipt Date: 20071110
  Transmission Date: 20090506
  Serious: No
  Sender: FDA-Public Use
  Company Number: US-AMGEN-KDL252108

PATIENT
  Sex: Male

DRUGS (1)
  1. ENBREL [Suspect]
     Indication: ANKYLOSING SPONDYLITIS
     Dates: start: 20061213

REACTIONS (4)
  - ANGER [None]
  - BLOOD PRESSURE INCREASED [None]
  - FRUSTRATION [None]
  - HYPERTENSION [None]
